FAERS Safety Report 8537663-5 (Version None)
Quarter: 2012Q3

REPORT INFORMATION
  Report Type: 
  Country: None (occurrence: None)
  Receive Date: 20120725
  Receipt Date: 20120720
  Transmission Date: 20120928
  Serious: Yes (Hospitalization, Other)
  Sender: FDA-Public Use
  Company Number: PHHY2012BR063080

PATIENT

DRUGS (1)
  1. ONBREZ [Suspect]
     Dosage: 300 UG, UNK

REACTIONS (1)
  - SUPRAVENTRICULAR TACHYCARDIA [None]
